FAERS Safety Report 16110303 (Version 1)
Quarter: 2019Q1

REPORT INFORMATION
  Report Type: Spontaneous
  Country: FR (occurrence: FR)
  Receive Date: 20190325
  Receipt Date: 20190325
  Transmission Date: 20190418
  Serious: Yes (Other)
  Sender: FDA-Public Use
  Company Number: FR-GLAXOSMITHKLINE-FR2019050762

PATIENT
  Age: 47 Year
  Sex: Female

DRUGS (4)
  1. AZANTAC [Suspect]
     Active Substance: RANITIDINE HYDROCHLORIDE
     Indication: ALLERGY PROPHYLAXIS
     Dosage: CYCLICAL
     Route: 042
     Dates: start: 20190128, end: 20190128
  2. POLARAMINE [Suspect]
     Active Substance: DEXCHLORPHENIRAMINE MALEATE
     Indication: ALLERGY PROPHYLAXIS
     Dosage: CYCLICAL
     Route: 042
     Dates: start: 20190128, end: 20190128
  3. DEXAMETHASONE. [Suspect]
     Active Substance: DEXAMETHASONE
     Indication: ALLERGY PROPHYLAXIS
     Dosage: CYCLICAL
     Route: 042
     Dates: start: 20190128, end: 20190128
  4. PACLITAXEL KABI [Suspect]
     Active Substance: PACLITAXEL
     Indication: BREAST CANCER
     Dosage: CYCLICAL
     Route: 042
     Dates: start: 20190128, end: 20190128

REACTIONS (8)
  - Dyspnoea [Recovered/Resolved]
  - Tachycardia [Recovered/Resolved]
  - Oedema [Recovered/Resolved]
  - Hypersensitivity [Recovered/Resolved]
  - Headache [Recovered/Resolved]
  - Bronchospasm [Recovered/Resolved]
  - Chest discomfort [Recovered/Resolved]
  - Dyspepsia [Recovered/Resolved]

NARRATIVE: CASE EVENT DATE: 20190128
